FAERS Safety Report 9719954 (Version 1)
Quarter: 2013Q4

REPORT INFORMATION
  Report Type: Report from Study
  Country: HR (occurrence: HR)
  Receive Date: 20131128
  Receipt Date: 20131128
  Transmission Date: 20140711
  Serious: Yes (Hospitalization)
  Sender: FDA-Public Use
  Company Number: HR-JNJFOC-20131113257

PATIENT
  Age: 28 Year
  Sex: Female
  Weight: 62 kg

DRUGS (4)
  1. STELARA [Suspect]
     Indication: PSORIASIS
     Route: 058
     Dates: start: 20130402, end: 20130402
  2. ENDOMYCIN [Concomitant]
     Indication: PSORIATIC ARTHROPATHY
     Dosage: 2X25 MG, DAILY
     Route: 048
     Dates: start: 2009
  3. SALAZOPYRIN [Concomitant]
     Indication: PSORIATIC ARTHROPATHY
     Dosage: 2X500 MG, DAILY
     Route: 048
     Dates: start: 2012, end: 20130401
  4. STELARA [Suspect]
     Indication: PSORIATIC ARTHROPATHY
     Route: 058
     Dates: start: 20130402, end: 20130402

REACTIONS (1)
  - Erythema multiforme [Recovered/Resolved]
